FAERS Safety Report 9278878 (Version 2)
Quarter: 2013Q3

REPORT INFORMATION
  Report Type: Spontaneous
  Country: US (occurrence: None)
  Receive Date: 20121004
  Receipt Date: 20130815
  Transmission Date: 20140515
  Serious: Yes (Other)
  Sender: FDA-Public Use
  Company Number: ADR-2012-00339

PATIENT
  Sex: Male

DRUGS (3)
  1. LIORESAL [Suspect]
     Indication: MUSCLE SPASTICITY
  2. LIORESAL [Suspect]
     Indication: SPINAL CORD INJURY
  3. LIORESAL [Suspect]
     Indication: SPINAL CORD DISORDER

REACTIONS (5)
  - Wound decomposition [None]
  - Catheter site related reaction [None]
  - Impaired healing [None]
  - Immune system disorder [None]
  - Wound decomposition [None]
